FAERS Safety Report 17352457 (Version 1)
Quarter: 2020Q1

REPORT INFORMATION
  Report Type: Spontaneous
  Country: GB (occurrence: GB)
  Receive Date: 20200130
  Receipt Date: 20200130
  Transmission Date: 20200409
  Serious: Yes (Hospitalization)
  Sender: FDA-Public Use
  Company Number: GB-TEVA-2020-GB-1176705

PATIENT
  Age: 88 Year
  Sex: Female

DRUGS (10)
  1. SERTRALINE [Concomitant]
     Active Substance: SERTRALINE HYDROCHLORIDE
     Dosage: 100 MG MORNING
     Route: 048
  2. LEVOTHYROXINE SODIUM. [Concomitant]
     Active Substance: LEVOTHYROXINE SODIUM
     Dosage: 75 MG MORNING
     Route: 048
  3. BISOPROLOL [Suspect]
     Active Substance: BISOPROLOL
     Dosage: 5 MG MORNING. DOSE REDUCED TO 2.5MG ONCE EVERY MORNING
     Route: 048
     Dates: end: 20200106
  4. MEMANTINE. [Suspect]
     Active Substance: MEMANTINE
     Dosage: 20 MG MORNING. REDUCED TO 10MG EVERY MORNING
     Route: 048
     Dates: start: 20190930, end: 20200107
  5. FERROUS FUMARATE [Concomitant]
     Active Substance: FERROUS FUMARATE
     Dosage: 644 MG
     Route: 048
  6. SIMVASTATIN. [Concomitant]
     Active Substance: SIMVASTATIN
     Dosage: 40 MG NIGHT
     Route: 048
  7. METFORMIN [Concomitant]
     Active Substance: METFORMIN HYDROCHLORIDE
     Dosage: 1000 MG
     Route: 048
  8. METOCLOPRAMIDE. [Concomitant]
     Active Substance: METOCLOPRAMIDE
     Dosage: 30 MG AS NECESSARY
     Route: 048
     Dates: start: 20191218
  9. PARACETAMOL [Concomitant]
     Active Substance: ACETAMINOPHEN
     Dosage: 2 G
     Route: 048
  10. CINNARIZINE [Concomitant]
     Active Substance: CINNARIZINE
     Dosage: 90 MG
     Route: 048

REACTIONS (3)
  - Orthostatic hypotension [Recovered/Resolved]
  - Dizziness [Recovered/Resolved]
  - Depressed mood [Unknown]

NARRATIVE: CASE EVENT DATE: 20191002
